FAERS Safety Report 14805522 (Version 1)
Quarter: 2018Q2

REPORT INFORMATION
  Report Type: Spontaneous
  Country: US (occurrence: US)
  Receive Date: 20180425
  Receipt Date: 20180425
  Transmission Date: 20180711
  Serious: No
  Sender: FDA-Public Use
  Company Number: US-SHIRE-US201815348

PATIENT
  Age: 23 Year
  Sex: Female

DRUGS (2)
  1. LIALDA [Suspect]
     Active Substance: MESALAMINE
     Indication: GASTROINTESTINAL DISORDER
     Route: 065
  2. PENTASA [Suspect]
     Active Substance: MESALAMINE
     Indication: GASTROINTESTINAL DISORDER
     Route: 065

REACTIONS (2)
  - Drug ineffective [Unknown]
  - Inappropriate schedule of drug administration [Unknown]
